FAERS Safety Report 10243196 (Version 1)
Quarter: 2014Q2

REPORT INFORMATION
  Report Type: Spontaneous
  Country: US (occurrence: None)
  Receive Date: 20140616
  Receipt Date: 20140616
  Transmission Date: 20141212
  Serious: Yes (Other)
  Sender: FDA-Public Use
  Company Number: None

PATIENT
  Age: 60 Year
  Sex: Female
  Weight: 68.04 kg

DRUGS (12)
  1. VALPROIC ACID [Suspect]
     Indication: BIPOLAR DISORDER
     Route: 048
     Dates: start: 20140428, end: 20140523
  2. NYSTATIN [Concomitant]
  3. BENZTROPINE MESYLATE [Concomitant]
  4. DILTIAZEM [Concomitant]
  5. LORAZEPAM [Concomitant]
  6. HALOPERIDOL [Concomitant]
  7. OLANZEPINE [Concomitant]
  8. PANTOPRAZOLE [Concomitant]
  9. DICLOFENAC [Concomitant]
  10. LUBRIDERM [Concomitant]
  11. HYDROCORTISONE [Concomitant]
  12. FISH OIL CONCENTRATE [Concomitant]

REACTIONS (3)
  - Rash [None]
  - Erythema [None]
  - Skin exfoliation [None]
